FAERS Safety Report 16542656 (Version 1)
Quarter: 2019Q3

REPORT INFORMATION
  Report Type: Spontaneous
  Country: US (occurrence: US)
  Receive Date: 20190709
  Receipt Date: 20190709
  Transmission Date: 20191004
  Serious: No
  Sender: FDA-Public Use
  Company Number: US-GLAXOSMITHKLINE-US2019121087

PATIENT
  Sex: Female

DRUGS (1)
  1. BENLYSTA [Suspect]
     Active Substance: BELIMUMAB
     Indication: PRODUCT USED FOR UNKNOWN INDICATION
     Dosage: 200 MG, CYC
     Route: 058
     Dates: start: 201906

REACTIONS (5)
  - Underdose [Unknown]
  - Injection site swelling [Recovered/Resolved]
  - Product communication issue [Unknown]
  - Exposure via skin contact [Recovered/Resolved]
  - Wrong technique in device usage process [Recovered/Resolved]
